FAERS Safety Report 9689072 (Version 1)
Quarter: 2013Q4

REPORT INFORMATION
  Report Type: Spontaneous
  Country: US (occurrence: US)
  Receive Date: 20131114
  Receipt Date: 20131114
  Transmission Date: 20140711
  Serious: Yes (Hospitalization)
  Sender: FDA-Public Use
  Company Number: US-PFIZER INC-2013323905

PATIENT
  Age: 75 Year
  Sex: Female
  Weight: 56.69 kg

DRUGS (3)
  1. VFEND [Suspect]
     Indication: OSTEOMYELITIS
     Dosage: 100 MG, ALTERNATE DAY
  2. VFEND [Suspect]
     Dosage: 100 MG, EVERY 3 DAYS
  3. VFEND [Suspect]
     Dosage: 100 MG, UNK

REACTIONS (2)
  - Rheumatoid arthritis [Unknown]
  - Asthenia [Unknown]
